FAERS Safety Report 6524598-2 (Version None)
Quarter: 2010Q1

REPORT INFORMATION
  Report Type: 
  Country: None (occurrence: None)
  Receive Date: 20100104
  Receipt Date: 20091222
  Transmission Date: 20100710
  Serious: Yes (Disabling, Other)
  Sender: FDA-Public Use
  Company Number: PHHY2009FR52472

PATIENT
  Sex: Female

DRUGS (5)
  1. ACLASTA [Suspect]
     Indication: OSTEOPOROSIS
     Dosage: UNK
     Route: 042
     Dates: start: 20091119
  2. CACIT D3 [Concomitant]
     Route: 048
  3. CORDARONE [Concomitant]
     Dosage: 200 MG, QD
     Route: 048
  4. PLAVIX [Concomitant]
     Dosage: 75 MG, QD
     Route: 048
  5. CRESTOR [Concomitant]
     Dosage: 5 MG, QD
     Route: 048

REACTIONS (8)
  - ARRHYTHMIA [None]
  - ARTHRALGIA [None]
  - DIZZINESS [None]
  - MUSCULOSKELETAL PAIN [None]
  - NAUSEA [None]
  - PAIN [None]
  - PYREXIA [None]
  - TENDONITIS [None]
